FAERS Safety Report 8835281 (Version 2)
Quarter: 2012Q4

REPORT INFORMATION
  Report Type: 
  Country: US (occurrence: US)
  Receive Date: 20121011
  Receipt Date: 20121101
  Transmission Date: 20130627
  Serious: Yes (Other)
  Sender: FDA-Public Use
  Company Number: US-UCBSA-068415

PATIENT
  Age: 69 Year
  Sex: Female

DRUGS (13)
  1. CIMZIA [Suspect]
     Indication: RHEUMATOID ARTHRITIS
     Route: 058
     Dates: start: 20110101, end: 20121001
  2. AMIODARONE [Concomitant]
     Dosage: DAILY DOSE-400 MG
  3. DIVALPROEX [Concomitant]
  4. CARISOPRODOL [Concomitant]
     Dosage: 350 MG QHS
  5. CITALOPRAM [Concomitant]
     Dosage: 40 MG
  6. VALSARTAN [Concomitant]
     Dosage: 100
  7. LYRICA [Concomitant]
  8. LASIX [Concomitant]
  9. TRAMADOL [Concomitant]
  10. AMBIEN [Concomitant]
  11. MELAXEN [Concomitant]
  12. FIORINAL [Concomitant]
  13. PREDNISONE [Concomitant]

REACTIONS (2)
  - Malignant melanoma [Unknown]
  - Squamous cell carcinoma [Unknown]
